FAERS Safety Report 9331241 (Version 1)
Quarter: 2013Q2

REPORT INFORMATION
  Report Type: Spontaneous
  Country: AU (occurrence: AU)
  Receive Date: 20130605
  Receipt Date: 20130605
  Transmission Date: 20140414
  Serious: Yes (Hospitalization)
  Sender: FDA-Public Use
  Company Number: AU-PFIZER INC-2013168902

PATIENT
  Age: 66 Year
  Sex: Male

DRUGS (8)
  1. RAMIPRIL [Suspect]
     Dosage: UNK
  2. SPIRONOLACTONE [Suspect]
     Dosage: UNK
     Route: 065
  3. ISOSORBIDE MONONITRATE [Suspect]
     Dosage: UNK
  4. BLINDED THERAPY [Suspect]
     Indication: CHRONIC OBSTRUCTIVE PULMONARY DISEASE
     Dosage: UNK
     Dates: start: 20130327
  5. BLINDED THERAPY [Suspect]
     Dosage: UNK
     Dates: start: 20130512
  6. DIGOXIN [Concomitant]
     Dosage: UNK
  7. WARFARIN [Concomitant]
     Dosage: UNK
  8. BISOPROLOL [Concomitant]
     Dosage: UNK

REACTIONS (3)
  - Orthostatic hypotension [Recovering/Resolving]
  - Syncope [Recovering/Resolving]
  - Dyspnoea [Recovering/Resolving]
